FAERS Safety Report 17964528 (Version 7)
Quarter: 2022Q3

REPORT INFORMATION
  Report Type: Spontaneous
  Country: US (occurrence: US)
  Receive Date: 20200630
  Receipt Date: 20220929
  Transmission Date: 20221027
  Serious: Yes (Other)
  Sender: FDA-Public Use
  Company Number: US-SA-2020SA165993

PATIENT
  Age: 25 Year
  Sex: Female
  Weight: 117.91 kg

DRUGS (12)
  1. FABRAZYME [Suspect]
     Active Substance: AGALSIDASE BETA
     Indication: Fabry^s disease
     Dosage: 120 MG, QOW
     Route: 042
     Dates: start: 20171114
  2. FABRAZYME [Suspect]
     Active Substance: AGALSIDASE BETA
     Dosage: 120 MG, QOW
     Route: 042
     Dates: start: 20200817, end: 20201209
  3. FABRAZYME [Suspect]
     Active Substance: AGALSIDASE BETA
     Dosage: 120 MG, QOW
     Route: 042
     Dates: start: 20200818, end: 20211012
  4. ACETAMINOPHEN [Concomitant]
     Active Substance: ACETAMINOPHEN
  5. LORATADINE [Concomitant]
     Active Substance: LORATADINE
  6. SODIUM CHLORIDE [Concomitant]
     Active Substance: SODIUM CHLORIDE
  7. STERILE WATER [Concomitant]
     Active Substance: WATER
  8. SPRINTEC [Concomitant]
     Active Substance: ETHINYL ESTRADIOL\NORGESTIMATE
  9. EPINEPHRINE [Concomitant]
     Active Substance: EPINEPHRINE
  10. CLARITIN [Concomitant]
     Active Substance: LORATADINE
  11. TYLENOL [Concomitant]
     Active Substance: ACETAMINOPHEN
  12. PROAIR HFA [Concomitant]
     Active Substance: ALBUTEROL SULFATE

REACTIONS (7)
  - Kidney infection [Unknown]
  - Neuropathy peripheral [Unknown]
  - COVID-19 [Unknown]
  - Constipation [Unknown]
  - Diarrhoea [Unknown]
  - Exposure during pregnancy [Unknown]
  - Product dose omission in error [Unknown]

NARRATIVE: CASE EVENT DATE: 20200101
